FAERS Safety Report 12783514 (Version 2)
Quarter: 2016Q4

REPORT INFORMATION
  Report Type: Spontaneous
  Country: US (occurrence: US)
  Receive Date: 20160927
  Receipt Date: 20161011
  Transmission Date: 20170207
  Serious: No
  Sender: FDA-Public Use
  Company Number: US-JNJFOC-20160917199

PATIENT
  Sex: Female
  Weight: 77.11 kg

DRUGS (2)
  1. ELMIRON [Suspect]
     Active Substance: PENTOSAN POLYSULFATE SODIUM
     Indication: CYSTITIS INTERSTITIAL
     Route: 048
     Dates: start: 2000, end: 2002
  2. ELMIRON [Suspect]
     Active Substance: PENTOSAN POLYSULFATE SODIUM
     Indication: CYSTITIS INTERSTITIAL
     Dosage: STARTED IN JAN-2016 OR FEB-2016
     Route: 048
     Dates: start: 2016

REACTIONS (3)
  - Off label use [Unknown]
  - Drug ineffective [Unknown]
  - Incorrect dose administered [Unknown]
